FAERS Safety Report 8959769 (Version 2)
Quarter: 2013Q1

REPORT INFORMATION
  Report Type: Spontaneous
  Country: BR (occurrence: BR)
  Receive Date: 20121212
  Receipt Date: 20130215
  Transmission Date: 20140127
  Serious: Yes (Hospitalization, Other)
  Sender: FDA-Public Use
  Company Number: PHHY2012BR113893

PATIENT
  Sex: Male

DRUGS (11)
  1. FORASEQ [Suspect]
     Indication: PNEUMONIA
     Dosage: 4 DF, QD
  2. FORASEQ [Suspect]
     Dosage: 4 DF, QD
  3. SEROQUEL XR [Concomitant]
     Indication: NERVOUSNESS
     Dosage: 1 DF, QD
     Route: 048
  4. CARDIZEM [Concomitant]
     Indication: HYPERTENSION
     Dosage: 2 DF, QD
     Route: 048
  5. VASOGARD [Concomitant]
     Indication: POOR PERIPHERAL CIRCULATION
     Dosage: 2 DF, QD
     Route: 048
  6. DIOSMIN [Concomitant]
     Indication: POOR PERIPHERAL CIRCULATION
     Dosage: 2 DF, QD
     Route: 048
  7. PLAVIX [Concomitant]
     Indication: BLOOD DISORDER
     Dosage: 1 DF, QD
     Route: 048
  8. LIPITOR [Concomitant]
     Indication: BLOOD CHOLESTEROL INCREASED
     Dosage: 1 DF, QD
     Route: 048
  9. PANTOPRAZOLE [Concomitant]
     Indication: ULCER
     Dosage: 1 DF, QD
     Route: 048
  10. GLIMEPIRIDE [Concomitant]
     Indication: DIABETES MELLITUS
     Dosage: 1 DF, QD
     Route: 048
  11. MONOCORDIL [Concomitant]
     Indication: CARDIAC DISORDER
     Dosage: 2 DF, QD
     Route: 048

REACTIONS (3)
  - Pneumonia [Recovered/Resolved]
  - Hernia [Recovered/Resolved]
  - Lung disorder [Recovered/Resolved]
